FAERS Safety Report 5224087-1 (Version None)
Quarter: 2007Q1

REPORT INFORMATION
  Report Type: 
  Country: None (occurrence: None)
  Receive Date: 20070130
  Receipt Date: 20070125
  Transmission Date: 20070707
  Serious: Yes (Other)
  Sender: FDA-Public Use
  Company Number: US-GLAXOSMITHKLINE-A0636848A

PATIENT
  Age: 73 Year
  Sex: Female

DRUGS (1)
  1. OS-CAL 500 + D CAPLETS [Suspect]
     Route: 065
     Dates: start: 20060101, end: 20060101

REACTIONS (2)
  - CONSTIPATION [None]
  - RECTAL HAEMORRHAGE [None]
